FAERS Safety Report 5848660-2 (Version None)
Quarter: 2008Q3

REPORT INFORMATION
  Report Type: 
  Country: None (occurrence: None)
  Receive Date: 20080818
  Receipt Date: 20080807
  Transmission Date: 20090109
  Serious: Yes (Hospitalization)
  Sender: FDA-Public Use
  Company Number: US-ELI_LILLY_AND_COMPANY-US200807006453

PATIENT
  Age: 78 Year
  Sex: Male

DRUGS (5)
  1. CYMBALTA [Suspect]
     Dosage: 30 MG, UNK
  2. CYMBALTA [Suspect]
     Dosage: 60 MG, UNK
     Dates: end: 20080501
  3. OTHER ANTIHYPERTENSIVES [Concomitant]
  4. OTHER CHOLESTEROL AND TRIGLYCERIDE REDUCERS [Concomitant]
  5. VITAMINS, OTHER COMBINATIONS [Concomitant]

REACTIONS (3)
  - MALAISE [None]
  - NERVOUSNESS [None]
  - PNEUMONIA [None]
